FAERS Safety Report 18606090 (Version 1)
Quarter: 2020Q4

REPORT INFORMATION
  Report Type: Spontaneous
  Country: PL (occurrence: PL)
  Receive Date: 20201211
  Receipt Date: 20201211
  Transmission Date: 20210114
  Serious: Yes (Life-Threatening, Other)
  Sender: FDA-Public Use
  Company Number: PL-FRESENIUS KABI-FK202013127

PATIENT
  Age: 11 Year
  Sex: Male

DRUGS (4)
  1. FUROSEMIDE. [Concomitant]
     Active Substance: FUROSEMIDE
     Indication: BRAIN OEDEMA
     Dosage: 0.7 MG/KG OF BODY WEIGHT
     Route: 042
  2. DEXAMETHASONE INJECTION (MANUFACTURER UNKNOWN) [Suspect]
     Active Substance: DEXAMETHASONE
     Indication: BRAIN OEDEMA
     Dosage: 0.2 MG/KG OF BODY WEIGHT
     Route: 042
  3. SODIUM BICARBONATE. [Suspect]
     Active Substance: SODIUM BICARBONATE
     Indication: BRAIN OEDEMA
     Route: 042
  4. MANNITOL. [Concomitant]
     Active Substance: MANNITOL
     Indication: BRAIN OEDEMA
     Dosage: 0.35 MG/KG OF BODY WEIGHT
     Route: 042

REACTIONS (4)
  - Condition aggravated [Recovered/Resolved]
  - Type 1 diabetes mellitus [Recovered/Resolved]
  - Brain oedema [Recovered/Resolved]
  - Diabetic ketoacidosis [Recovered/Resolved]
